FAERS Safety Report 7204198-1 (Version None)
Quarter: 2010Q4

REPORT INFORMATION
  Report Type: 
  Country: None (occurrence: None)
  Receive Date: 20101230
  Receipt Date: 20101018
  Transmission Date: 20110411
  Serious: Yes (Hospitalization, Other)
  Sender: FDA-Public Use
  Company Number: US-BAYER-201010138NA

PATIENT
  Sex: Female
  Weight: 109.9 kg

DRUGS (7)
  1. YASMIN [Suspect]
     Indication: MUSCLE SPASMS
     Dates: end: 20070102
  2. YASMIN [Suspect]
     Dates: start: 20061001
  3. MUSCLE RELAXANT [Concomitant]
  4. QUININE [Concomitant]
     Indication: MUSCLE SPASMS
  5. VICODIN [Concomitant]
     Indication: PAIN IN EXTREMITY
     Dosage: ONE TABLET EVERY 4 HOURS AS NEEDED
  6. MOTRIN [Concomitant]
     Indication: PAIN IN EXTREMITY
  7. LOVENOX [Concomitant]

REACTIONS (7)
  - ANGIOPATHY [None]
  - DEEP VEIN THROMBOSIS [None]
  - MUSCLE SPASMS [None]
  - OEDEMA PERIPHERAL [None]
  - PAIN [None]
  - PAIN IN EXTREMITY [None]
  - PULMONARY EMBOLISM [None]
